FAERS Safety Report 18780501 (Version 1)
Quarter: 2021Q1

REPORT INFORMATION
  Report Type: Report from Study
  Country: US (occurrence: US)
  Receive Date: 20210125
  Receipt Date: 20210125
  Transmission Date: 20210419
  Serious: Yes (Death, Hospitalization)
  Sender: FDA-Public Use
  Company Number: US-TAIHO ONCOLOGY  INC-EU-2021-00195

PATIENT
  Age: 55 Year
  Sex: Female

DRUGS (1)
  1. LONSURF [Suspect]
     Active Substance: TIPIRACIL HYDROCHLORIDE\TRIFLURIDINE
     Indication: COLON CANCER
     Dosage: CYCLE UNKNOWN
     Route: 048
     Dates: start: 20201203

REACTIONS (2)
  - Surgery [Recovered/Resolved]
  - Cardiac arrest [Fatal]

NARRATIVE: CASE EVENT DATE: 20210117
